FAERS Safety Report 5358401-3 (Version None)
Quarter: 2007Q2

REPORT INFORMATION
  Report Type: 
  Country: None (occurrence: None)
  Receive Date: 20070615
  Receipt Date: 20070607
  Transmission Date: 20071010
  Serious: Yes (Hospitalization, Other)
  Sender: FDA-Public Use
  Company Number: PHBS2007JP08594

PATIENT
  Age: 56 Year
  Sex: Male

DRUGS (5)
  1. SIMULECT [Suspect]
     Indication: RENAL TRANSPLANT
     Dosage: 20 MG, ONCE/SINGLE
     Route: 042
     Dates: start: 20070521, end: 20070521
  2. CELLCEPT [Concomitant]
     Indication: RENAL TRANSPLANT
     Dosage: 300 MG/D
     Route: 048
  3. NEORAL [Suspect]
     Indication: RENAL TRANSPLANT
     Dosage: UNK, UNK
     Route: 048
     Dates: end: 20070520
  4. SANDIMMUNE [Suspect]
     Indication: RENAL TRANSPLANT
     Dosage: 120 MG/D
     Route: 042
     Dates: start: 20070521
  5. SOLU-MEDROL [Concomitant]
     Indication: RENAL TRANSPLANT
     Dosage: 125 MG/D
     Route: 042
     Dates: start: 20070521

REACTIONS (5)
  - ANAPHYLACTIC REACTION [None]
  - BLOOD PRESSURE DECREASED [None]
  - HAEMODIALYSIS [None]
  - KIDNEY TRANSPLANT REJECTION [None]
  - URINE OUTPUT DECREASED [None]
